FAERS Safety Report 13332892 (Version 1)
Quarter: 2017Q1

REPORT INFORMATION
  Report Type: Spontaneous
  Country: JP (occurrence: JP)
  Receive Date: 20170313
  Receipt Date: 20170313
  Transmission Date: 20170428
  Serious: Yes (Other)
  Sender: FDA-Public Use
  Company Number: JP-PFIZER INC-2017106467

PATIENT
  Age: 84 Year
  Sex: Female

DRUGS (3)
  1. CABASER 1.0MG [Suspect]
     Active Substance: CABERGOLINE
     Dosage: 0.5 MG, DAILY
     Route: 048
     Dates: start: 20170225, end: 20170306
  2. CABASER 1.0MG [Suspect]
     Active Substance: CABERGOLINE
     Dosage: 0.25 MG, DAILY
     Route: 048
     Dates: start: 20170307
  3. CABASER 1.0MG [Suspect]
     Active Substance: CABERGOLINE
     Indication: PARKINSON^S DISEASE
     Dosage: 1 MG, DAILY
     Route: 048
     Dates: start: 20170207, end: 20170224

REACTIONS (4)
  - Aggression [Unknown]
  - Delirium [Unknown]
  - Somnolence [Unknown]
  - Energy increased [Unknown]

NARRATIVE: CASE EVENT DATE: 2017
